FAERS Safety Report 4323227-6 (Version None)
Quarter: 2004Q1

REPORT INFORMATION
  Report Type: 
  Country: None (occurrence: None)
  Receive Date: 20040322
  Receipt Date: 20040310
  Transmission Date: 20041129
  Serious: Yes (Hospitalization)
  Sender: FDA-Public Use
  Company Number: 2004-01041

PATIENT
  Age: 60 Year
  Sex: Male

DRUGS (3)
  1. FLUOROURACIL [Suspect]
     Indication: COLON CANCER
     Dosage: 5 FU/FA AT 370 + 20 MG/M2 WEEKLY,UNK
  2. PHENYTOIN [Suspect]
     Indication: EPILEPSY
     Dosage: SEE IMAGE
     Route: 048
     Dates: start: 19880101
  3. FOLINIC ACID (FOLINIC ACID) [Concomitant]

REACTIONS (6)
  - ABASIA [None]
  - ATAXIA [None]
  - DIZZINESS [None]
  - DRUG INTERACTION POTENTIATION [None]
  - DRUG TOXICITY [None]
  - DYSSTASIA [None]
